FAERS Safety Report 16818985 (Version 2)
Quarter: 2019Q3

REPORT INFORMATION
  Report Type: Spontaneous
  Country: US (occurrence: US)
  Receive Date: 20190917
  Receipt Date: 20190923
  Transmission Date: 20191005
  Serious: No
  Sender: FDA-Public Use
  Company Number: US-PFIZER INC-2019398002

PATIENT
  Age: 84 Year
  Sex: Female
  Weight: 60.78 kg

DRUGS (3)
  1. CIPROFLOXACIN. [Interacting]
     Active Substance: CIPROFLOXACIN
     Indication: URINARY TRACT INFECTION
     Dosage: 500 MG, 2X/DAY
     Route: 048
     Dates: start: 20190909
  2. PREDNISONE. [Concomitant]
     Active Substance: PREDNISONE
     Dosage: 10 MG, UNK
  3. XELJANZ XR [Suspect]
     Active Substance: TOFACITINIB CITRATE
     Indication: PAIN
     Dosage: 11 MG, 1X/DAY
     Dates: start: 20190801

REACTIONS (10)
  - Urinary tract infection [Unknown]
  - Drug interaction [Unknown]
  - Asthenia [Unknown]
  - Nasopharyngitis [Unknown]
  - Malaise [Unknown]
  - Nervousness [Unknown]
  - Hypoacusis [Unknown]
  - Decreased appetite [Unknown]
  - Hypoaesthesia [Not Recovered/Not Resolved]
  - Chills [Unknown]

NARRATIVE: CASE EVENT DATE: 20190909
